FAERS Safety Report 10738964 (Version 1)
Quarter: 2015Q1

REPORT INFORMATION
  Report Type: Spontaneous
  Country: US (occurrence: US)
  Receive Date: 20150126
  Receipt Date: 20150126
  Transmission Date: 20150721
  Serious: No
  Sender: FDA-Public Use
  Company Number: US-GLAXOSMITHKLINE-A1076423A

PATIENT

DRUGS (2)
  1. MEPRON [Suspect]
     Active Substance: ATOVAQUONE
     Indication: PNEUMOCYSTIS JIROVECII PNEUMONIA
     Dosage: UNKNOWN DOSING.
     Route: 065
  2. UNKNOWN [Concomitant]
     Active Substance: UNSPECIFIED INGREDIENT

REACTIONS (1)
  - Laryngitis [Unknown]
